FAERS Safety Report 12687452 (Version 10)
Quarter: 2022Q3

REPORT INFORMATION
  Report Type: Report from Study
  Country: JP (occurrence: JP)
  Receive Date: 20160826
  Receipt Date: 20220801
  Transmission Date: 20221027
  Serious: Yes (Other)
  Sender: FDA-Public Use
  Company Number: JP-ALEXION PHARMACEUTICALS INC.-A201603189

PATIENT
  Age: 31 Year
  Sex: Male
  Weight: 62 kg

DRUGS (26)
  1. SOLIRIS [Suspect]
     Active Substance: ECULIZUMAB
     Dosage: 900 MG, Q2W
     Route: 042
     Dates: start: 20131004, end: 20160205
  2. SOLIRIS [Suspect]
     Active Substance: ECULIZUMAB
     Indication: Paroxysmal nocturnal haemoglobinuria
     Dosage: 600 MG, QW
     Route: 042
     Dates: start: 20130906, end: 20130927
  3. SOLIRIS [Suspect]
     Active Substance: ECULIZUMAB
     Dosage: 900 MG, QMONTH
     Route: 042
     Dates: start: 20170428, end: 20170428
  4. SOLIRIS [Suspect]
     Active Substance: ECULIZUMAB
     Dosage: 900 MG, Q2W
     Route: 042
     Dates: start: 20160427, end: 20160527
  5. SOLIRIS [Suspect]
     Active Substance: ECULIZUMAB
     Dosage: 900 MG, Q2W
     Route: 042
     Dates: start: 20160615, end: 20160701
  6. SOLIRIS [Suspect]
     Active Substance: ECULIZUMAB
     Dosage: 900 MG, Q2W
     Route: 042
     Dates: start: 20170818
  7. SOLIRIS [Suspect]
     Active Substance: ECULIZUMAB
     Dosage: 900 MG, Q3W
     Route: 042
     Dates: start: 20160224, end: 20160406
  8. SOLIRIS [Suspect]
     Active Substance: ECULIZUMAB
     Dosage: 900 MG, Q3W
     Route: 042
     Dates: start: 20160527, end: 20160615
  9. SOLIRIS [Suspect]
     Active Substance: ECULIZUMAB
     Dosage: 900 MG, Q3W
     Route: 042
     Dates: start: 20160701, end: 20160902
  10. SOLIRIS [Suspect]
     Active Substance: ECULIZUMAB
     Dosage: 900 MG, Q3W
     Route: 042
     Dates: start: 20161011, end: 20161122
  11. SOLIRIS [Suspect]
     Active Substance: ECULIZUMAB
     Dosage: 900 MG, Q3W
     Route: 042
     Dates: start: 20170113, end: 20170407
  12. SOLIRIS [Suspect]
     Active Substance: ECULIZUMAB
     Dosage: 900 MG, Q3W
     Route: 042
     Dates: start: 20170526, end: 20170728
  13. SOLIRIS [Suspect]
     Active Substance: ECULIZUMAB
     Dosage: 900 MG, ONCE IN 17 DAYS
     Route: 042
     Dates: start: 20161122, end: 20161209
  14. SOLIRIS [Suspect]
     Active Substance: ECULIZUMAB
     Dosage: 900 MG, ONCE IN 17 DAYS
     Route: 042
     Dates: start: 20161227, end: 20170113
  15. SOLIRIS [Suspect]
     Active Substance: ECULIZUMAB
     Dosage: 900 MG, ONCE IN 18 DAYS
     Route: 042
     Dates: start: 20160923, end: 20161011
  16. SOLIRIS [Suspect]
     Active Substance: ECULIZUMAB
     Dosage: 900 MG, ONCE IN 18 DAYS
     Route: 042
     Dates: start: 20161209, end: 20161227
  17. SOLIRIS [Suspect]
     Active Substance: ECULIZUMAB
     Dosage: UNK
     Route: 042
     Dates: start: 202111
  18. PREDNISOLONE SODIUM PHOSPHATE [Concomitant]
     Active Substance: PREDNISOLONE SODIUM PHOSPHATE
     Indication: Colitis ulcerative
     Dosage: 20 MG, DAILY
     Route: 065
     Dates: start: 20170405, end: 20180307
  19. PREDNISOLONE SODIUM PHOSPHATE [Concomitant]
     Active Substance: PREDNISOLONE SODIUM PHOSPHATE
     Indication: Paroxysmal nocturnal haemoglobinuria
     Dosage: 20 MG, DAILY
     Route: 065
     Dates: start: 20160711, end: 20170222
  20. PREDONINE [Concomitant]
     Active Substance: PREDNISOLONE
     Dosage: 6 DF, UNK
     Route: 065
     Dates: start: 20161109, end: 20161109
  21. PREDONINE [Concomitant]
     Active Substance: PREDNISOLONE
     Dosage: 6 DF, UNK
     Route: 065
     Dates: start: 20161027, end: 20161027
  22. PREDONINE [Concomitant]
     Active Substance: PREDNISOLONE
     Dosage: 6 DF, UNK
     Route: 065
     Dates: start: 20160825, end: 20160825
  23. PREDONINE [Concomitant]
     Active Substance: PREDNISOLONE
     Dosage: 6 DF, UNK
     Route: 065
     Dates: start: 20160816, end: 20160816
  24. PREDONINE [Concomitant]
     Active Substance: PREDNISOLONE
     Dosage: 6 DF, UNK
     Route: 065
     Dates: start: 20160801, end: 20160801
  25. PREDONINE [Concomitant]
     Active Substance: PREDNISOLONE
     Indication: Paroxysmal nocturnal haemoglobinuria
     Dosage: 6 DF, DAILY
     Route: 065
     Dates: start: 20160720, end: 20160720
  26. RINDERON [Concomitant]
     Indication: Paroxysmal nocturnal haemoglobinuria
     Dosage: 1 MG, DAILY
     Route: 065
     Dates: start: 20160916, end: 20180117

REACTIONS (3)
  - Colitis ulcerative [Recovering/Resolving]
  - Bronchitis [Recovered/Resolved]
  - Inappropriate schedule of product administration [Unknown]

NARRATIVE: CASE EVENT DATE: 20151104
